FAERS Safety Report 6504729-0 (Version None)
Quarter: 2009Q4

REPORT INFORMATION
  Report Type: 
  Country: None (occurrence: None)
  Receive Date: 20091218
  Receipt Date: 20081230
  Transmission Date: 20100525
  Serious: No
  Sender: FDA-Public Use
  Company Number: A0762069A

PATIENT
  Age: 46 Year
  Sex: Male

DRUGS (6)
  1. LEXIVA [Suspect]
     Indication: HIV INFECTION
     Dosage: 700MG TWICE PER DAY
     Route: 048
  2. UNSPECIFIED MEDICATION [Concomitant]
  3. VIREAD [Concomitant]
  4. NORVIR [Concomitant]
  5. DILANTIN [Concomitant]
  6. DECADRON [Concomitant]

REACTIONS (2)
  - MEDICATION ERROR [None]
  - THERMAL BURN [None]
